FAERS Safety Report 6496792-0 (Version None)
Quarter: 2009Q4

REPORT INFORMATION
  Report Type: 
  Country: None (occurrence: None)
  Receive Date: 20091125
  Receipt Date: 20090327
  Transmission Date: 20100525
  Serious: Yes (Other)
  Sender: FDA-Public Use
  Company Number: 2009BH004938

PATIENT
  Age: 21 Year
  Sex: Female

DRUGS (14)
  1. DIANEAL [Suspect]
     Indication: PERITONEAL DIALYSIS
     Dosage: 10 L ; EVERY DAY ; IP
     Route: 033
     Dates: start: 20090316
  2. DIANEAL [Suspect]
     Indication: PERITONEAL DIALYSIS
     Dosage: ; PRN ; IP
     Route: 033
     Dates: start: 20090302, end: 20090316
  3. LISINOPRIL [Concomitant]
  4. PHOSLO [Concomitant]
  5. ZEMPLAR [Concomitant]
  6. LABETALOL HCL [Concomitant]
  7. NIFEDIPINE [Concomitant]
  8. PREDNISONE [Concomitant]
  9. ASPIRIN [Concomitant]
  10. DIOVAN [Concomitant]
  11. EPOGEN [Concomitant]
  12. NEPHRO-VITE [Concomitant]
  13. COLACE [Concomitant]
  14. FOLIC ACID [Concomitant]

REACTIONS (2)
  - PERITONEAL DIALYSIS COMPLICATION [None]
  - PERITONITIS BACTERIAL [None]
